FAERS Safety Report 13347478 (Version 1)
Quarter: 2017Q1

REPORT INFORMATION
  Report Type: Spontaneous
  Country: None (occurrence: US)
  Receive Date: 20170317
  Receipt Date: 20170317
  Transmission Date: 20170428
  Serious: No
  Sender: FDA-Public Use
  Company Number: US-MERZ NORTH AMERICA, INC.-17MRZ-00074

PATIENT
  Age: 55 Year
  Sex: Female

DRUGS (1)
  1. XEOMIN [Suspect]
     Active Substance: INCOBOTULINUMTOXINA
     Indication: MIGRAINE WITHOUT AURA

REACTIONS (3)
  - Nausea [Unknown]
  - Gastroenteritis viral [Unknown]
  - Migraine [Unknown]

NARRATIVE: CASE EVENT DATE: 20170117
